FAERS Safety Report 24856544 (Version 1)
Quarter: 2025Q1

REPORT INFORMATION
  Report Type: Spontaneous
  Country: US (occurrence: None)
  Receive Date: 20250117
  Receipt Date: 20250117
  Transmission Date: 20250409
  Serious: Yes (Hospitalization)
  Sender: FDA-CTU
  Company Number: None

PATIENT
  Sex: Female

DRUGS (11)
  1. DASATINIB [Suspect]
     Active Substance: DASATINIB
     Indication: Chronic myeloid leukaemia
     Dosage: FREQUENCY : DAILY;?
     Route: 048
     Dates: start: 20240926
  2. DASATINIB [Suspect]
     Active Substance: DASATINIB
     Indication: Philadelphia chromosome positive
  3. ASPIRIN TAB 325MG EC [Concomitant]
  4. ASPIRIN [Concomitant]
     Active Substance: ASPIRIN
  5. ATORVASTATIN TAB 20MG [Concomitant]
  6. COLD/FLU REL PAK DAY/NIGHT [Concomitant]
  7. DISCLOFENAC GEL 1% [Concomitant]
  8. HYDROCORTISO CRE 2.5% [Concomitant]
  9. MUCINEX TAB 600MG ER [Concomitant]
  10. SPRYCEL [Concomitant]
     Active Substance: DASATINIB
  11. SPRYCEL [Concomitant]
     Active Substance: DASATINIB

REACTIONS (2)
  - Cardiac disorder [None]
  - Therapy interrupted [None]
